FAERS Safety Report 8250637-7 (Version None)
Quarter: 2012Q1

REPORT INFORMATION
  Report Type: 
  Country: None (occurrence: None)
  Receive Date: 20120328
  Receipt Date: 20120314
  Transmission Date: 20120608
  Serious: Yes (Death)
  Sender: FDA-Public Use
  Company Number: 2012MA003709

PATIENT
  Age: 44 Year
  Sex: Female

DRUGS (5)
  1. PEGASYS [Suspect]
     Dosage: 180 MG;QW;SQ 3
     Dates: start: 20110209
  2. AMITRIPTYLINE HCL [Suspect]
  3. COPEGUS [Suspect]
     Dosage: 400 MG;BID;
     Dates: start: 20110209
  4. METHADONE HCL [Suspect]
     Indication: DRUG DEPENDENCE
  5. DIAZEPAM [Suspect]

REACTIONS (1)
  - TOXICITY TO VARIOUS AGENTS [None]
